FAERS Safety Report 22239544 (Version 3)
Quarter: 2023Q2

REPORT INFORMATION
  Report Type: Spontaneous
  Country: CA (occurrence: CA)
  Receive Date: 20230421
  Receipt Date: 20230518
  Transmission Date: 20230722
  Serious: Yes (Other)
  Sender: FDA-Public Use
  Company Number: CA-PFIZER INC-202201358937

PATIENT
  Age: 33 Year
  Sex: Female
  Weight: 53 kg

DRUGS (5)
  1. XELJANZ [Suspect]
     Active Substance: TOFACITINIB CITRATE
     Indication: Colitis ulcerative
     Dosage: 10 MG, 2X/DAY FOR 12 WEEKS
     Route: 048
     Dates: start: 20221202, end: 2023
  2. XELJANZ [Suspect]
     Active Substance: TOFACITINIB CITRATE
     Dosage: 5 MG, 2X/DAY MAINTENANCE
     Route: 048
     Dates: start: 2023, end: 2023
  3. XELJANZ [Suspect]
     Active Substance: TOFACITINIB CITRATE
     Dosage: 10 MG, 2X/DAY
     Route: 048
     Dates: start: 2023
  4. PREDNISONE [Concomitant]
     Active Substance: PREDNISONE
     Dosage: 1 DF, DOSAGE INFO: UNKNOWN
     Route: 065
     Dates: start: 20221201
  5. PREDNISONE [Concomitant]
     Active Substance: PREDNISONE
     Dosage: UNK, (FINISHED PREDNISONE IN JANUARY LAST WEEK)
     Dates: start: 202301

REACTIONS (12)
  - Haematochezia [Not Recovered/Not Resolved]
  - Product dose omission issue [Unknown]
  - Eructation [Not Recovered/Not Resolved]
  - Dysgeusia [Not Recovered/Not Resolved]
  - Blood prolactin increased [Not Recovered/Not Resolved]
  - Acne [Not Recovered/Not Resolved]
  - Rash [Not Recovered/Not Resolved]
  - Oral herpes [Not Recovered/Not Resolved]
  - Breast tenderness [Recovering/Resolving]
  - Condition aggravated [Recovering/Resolving]
  - Haemorrhoids [Not Recovered/Not Resolved]
  - Haemorrhoid infection [Not Recovered/Not Resolved]

NARRATIVE: CASE EVENT DATE: 20220101
